FAERS Safety Report 19760725 (Version 1)
Quarter: 2021Q3

REPORT INFORMATION
  Report Type: Spontaneous
  Country: US (occurrence: US)
  Receive Date: 20210830
  Receipt Date: 20210830
  Transmission Date: 20211014
  Serious: Yes (Other)
  Sender: FDA-Public Use
  Company Number: US-GLAXOSMITHKLINE-US2021GSK182658

PATIENT
  Sex: Male

DRUGS (4)
  1. ZANTAC [Suspect]
     Active Substance: RANITIDINE HYDROCHLORIDE
     Indication: GASTRIC MUCOSAL HYPERTROPHY
     Dosage: 150 MG, QD
     Route: 065
     Dates: start: 198410, end: 200303
  2. ZANTAC [Suspect]
     Active Substance: RANITIDINE HYDROCHLORIDE
     Indication: GASTRIC MUCOSAL HYPERTROPHY
     Dosage: 150 MG, QD
     Route: 065
     Dates: start: 198410, end: 200303
  3. RANITIDINE CAPSULE [Suspect]
     Active Substance: RANITIDINE
     Indication: GASTRIC MUCOSAL HYPERTROPHY
     Dosage: 150 MG, QD
     Route: 065
     Dates: start: 198410, end: 200303
  4. ZANTAC [Suspect]
     Active Substance: RANITIDINE HYDROCHLORIDE
     Indication: GASTRIC MUCOSAL HYPERTROPHY
     Dosage: 150 MG, QD
     Route: 065
     Dates: start: 198410, end: 200303

REACTIONS (2)
  - Bladder cancer [Unknown]
  - Renal cancer [Unknown]
